FAERS Safety Report 8256326-7 (Version None)
Quarter: 2012Q2

REPORT INFORMATION
  Report Type: 
  Country: None (occurrence: None)
  Receive Date: 20120403
  Receipt Date: 20120323
  Transmission Date: 20120825
  Serious: Yes (Other)
  Sender: FDA-Public Use
  Company Number: US-GENZYME-THYM-1003089

PATIENT

DRUGS (2)
  1. THYMOGLOBULIN [Suspect]
     Indication: PRODUCT USED FOR UNKNOWN INDICATION
     Dosage: UNK
     Route: 065
  2. THYMOGLOBULIN [Suspect]
     Dosage: UNK
     Route: 065

REACTIONS (1)
  - PULMONARY OEDEMA [None]
